FAERS Safety Report 10425712 (Version 2)
Quarter: 2014Q3

REPORT INFORMATION
  Report Type: Spontaneous
  Country: FR (occurrence: FR)
  Receive Date: 20140903
  Receipt Date: 20140910
  Transmission Date: 20150326
  Serious: Yes (Death)
  Sender: FDA-Public Use
  Company Number: FR-ROCHE-1456008

PATIENT
  Age: 94 Year
  Sex: Male

DRUGS (3)
  1. ROCEPHINE [Suspect]
     Active Substance: CEFTRIAXONE SODIUM
     Indication: PROSTATITIS
     Route: 042
     Dates: start: 20140731
  2. GENTAMICIN [Suspect]
     Active Substance: GENTAMICIN
     Indication: PROSTATITIS
     Route: 042
     Dates: start: 20140731, end: 20140801
  3. CIFLOX (FRANCE) [Suspect]
     Active Substance: CIPROFLOXACIN
     Indication: PROSTATITIS
     Route: 048
     Dates: start: 20140716, end: 20140731

REACTIONS (4)
  - Acute generalised exanthematous pustulosis [Fatal]
  - Hepatic failure [Fatal]
  - Pyrexia [Fatal]
  - Renal failure [Fatal]

NARRATIVE: CASE EVENT DATE: 20140731
